FAERS Safety Report 8435602-9 (Version None)
Quarter: 2012Q2

REPORT INFORMATION
  Report Type: 
  Country: None (occurrence: None)
  Receive Date: 20120614
  Receipt Date: 20120606
  Transmission Date: 20120825
  Serious: Yes (Other)
  Sender: FDA-Public Use
  Company Number: IT-UCBSA-058592

PATIENT
  Age: 72 Year
  Sex: Female

DRUGS (4)
  1. ALPRAZOLAM [Concomitant]
     Dosage: SINCE 12 YAERS, TOTAL DAILY DOSE: 0.25 MG
     Route: 048
  2. MEDROL [Concomitant]
     Indication: RHEUMATOID ARTHRITIS
     Dosage: TOTAL DAILY DOSE: 4MG, SINCE 7 YEARS
     Route: 048
  3. CALCITRIOL [Concomitant]
     Indication: VITAMIN D DEFICIENCY
     Dosage: TOTAL DAILY DOSE:0.25 MICROGRAM ,SINCE 8 YEARS
     Route: 048
  4. CIMZIA [Suspect]
     Indication: RHEUMATOID ARTHRITIS
     Route: 058
     Dates: start: 20120228, end: 20120423

REACTIONS (1)
  - VENOUS THROMBOSIS LIMB [None]
